FAERS Safety Report 10096171 (Version 1)
Quarter: 2014Q2

REPORT INFORMATION
  Report Type: Spontaneous
  Country: CA (occurrence: CA)
  Receive Date: 20140422
  Receipt Date: 20140422
  Transmission Date: 20141212
  Serious: Yes (Life-Threatening, Hospitalization, Other)
  Sender: FDA-Public Use
  Company Number: CA-ACTAVIS-2014-07673

PATIENT
  Age: 65 Year
  Sex: Female
  Weight: 51 kg

DRUGS (4)
  1. ACETAMINOPHEN (UNKNOWN) [Suspect]
     Indication: SUICIDE ATTEMPT
     Dosage: APPROXIMATELY 60 G
     Route: 065
  2. PREDNISONE (UNKNOWN) [Suspect]
     Indication: SUICIDE ATTEMPT
     Dosage: UNK
     Route: 065
  3. VITAMIN D                          /00107901/ [Concomitant]
     Indication: PRODUCT USED FOR UNKNOWN INDICATION
     Dosage: 1000 IU, DAILY
     Route: 065
  4. ACETYLSALICYLIC ACID [Concomitant]
     Indication: PRODUCT USED FOR UNKNOWN INDICATION
     Dosage: 81 MG, DAILY
     Route: 065

REACTIONS (7)
  - Coma [Recovered/Resolved]
  - Lactic acidosis [Recovered/Resolved]
  - Vomiting [Unknown]
  - Hypothermia [Unknown]
  - Hyperglycaemia [Recovered/Resolved]
  - Overdose [Recovered/Resolved]
  - Suicide attempt [Recovered/Resolved]
